FAERS Safety Report 23308482 (Version 2)
Quarter: 2024Q1

REPORT INFORMATION
  Report Type: Spontaneous
  Country: US (occurrence: US)
  Receive Date: 20231218
  Receipt Date: 20240201
  Transmission Date: 20240409
  Serious: No
  Sender: FDA-Public Use
  Company Number: US-SA-SAC20231215000154

PATIENT
  Age: 61 Year
  Sex: Female
  Weight: 130.63 kg

DRUGS (3)
  1. DUPIXENT [Suspect]
     Active Substance: DUPILUMAB
     Indication: Dermatitis atopic
     Dosage: 300 MG, QOW
     Route: 058
  2. DUPIXENT [Suspect]
     Active Substance: DUPILUMAB
     Indication: Psoriasis
  3. VITAMIN D NOS [Concomitant]
     Active Substance: VITAMIN D NOS

REACTIONS (9)
  - Muscular weakness [Unknown]
  - Gait disturbance [Unknown]
  - Hypokinesia [Unknown]
  - Gait disturbance [Not Recovered/Not Resolved]
  - Pain [Unknown]
  - Vitamin D decreased [Unknown]
  - Blood creatinine abnormal [Unknown]
  - Drug hypersensitivity [Not Recovered/Not Resolved]
  - Product use in unapproved indication [Unknown]

NARRATIVE: CASE EVENT DATE: 20230801
